FAERS Safety Report 6365263-4 (Version None)
Quarter: 2009Q3

REPORT INFORMATION
  Report Type: 
  Country: None (occurrence: None)
  Receive Date: 20090919
  Receipt Date: 20090810
  Transmission Date: 20100115
  Serious: No
  Sender: FDA-Public Use
  Company Number: US-ABBOTT-09P-163-0590466-00

PATIENT
  Sex: Female
  Weight: 70.37 kg

DRUGS (9)
  1. HUMIRA [Suspect]
     Indication: CROHN'S DISEASE
     Route: 058
     Dates: start: 20090201
  2. ALLEGRA [Concomitant]
     Indication: DRUG USE FOR UNKNOWN INDICATION
  3. NEXIUM [Concomitant]
     Indication: DRUG USE FOR UNKNOWN INDICATION
  4. EFFEXOR [Concomitant]
     Indication: DRUG USE FOR UNKNOWN INDICATION
  5. AZATHIAPRINE [Concomitant]
     Indication: DRUG USE FOR UNKNOWN INDICATION
  6. LISINOPRIL [Concomitant]
     Indication: DRUG USE FOR UNKNOWN INDICATION
  7. INDURAL [Concomitant]
     Indication: DRUG USE FOR UNKNOWN INDICATION
  8. INDOCIN [Concomitant]
     Indication: DRUG USE FOR UNKNOWN INDICATION
  9. LYRICA [Concomitant]
     Indication: DRUG USE FOR UNKNOWN INDICATION

REACTIONS (4)
  - ABDOMINAL PAIN UPPER [None]
  - DIARRHOEA [None]
  - DRUG DOSE OMISSION [None]
  - FATIGUE [None]
